FAERS Safety Report 9180876 (Version 1)
Quarter: 2013Q1

REPORT INFORMATION
  Report Type: Spontaneous
  Country: SE (occurrence: SE)
  Receive Date: 20130322
  Receipt Date: 20130322
  Transmission Date: 20140127
  Serious: Yes (Other)
  Sender: FDA-Public Use
  Company Number: SE-MPIJNJ-2013-02066

PATIENT
  Sex: 0

DRUGS (18)
  1. VELCADE [Suspect]
     Indication: PLASMA CELL MYELOMA
     Dosage: UNK
     Route: 065
  2. DEXAMETHASONE [Suspect]
     Indication: PRODUCT USED FOR UNKNOWN INDICATION
     Route: 065
  3. KESTINE [Concomitant]
  4. PRIMPERAN                          /00041901/ [Concomitant]
  5. OMEPRAZOL                          /00661201/ [Concomitant]
  6. ACYCLOVIR                          /00587301/ [Concomitant]
  7. SERTRALIN                          /01011401/ [Concomitant]
  8. KALCIPOS [Concomitant]
  9. ONDANSETRON [Concomitant]
  10. PANODIL [Concomitant]
  11. RINEXIN [Concomitant]
  12. EUSAPRIM                           /00086101/ [Concomitant]
  13. IPREN [Concomitant]
  14. BRICANYL                           /00199202/ [Concomitant]
  15. OXASCAND [Concomitant]
  16. LIVOSTIN                           /01196302/ [Concomitant]
  17. PULMICORT [Concomitant]
  18. MOVICOL                            /01053601/ [Concomitant]

REACTIONS (1)
  - Retinal vein thrombosis [Not Recovered/Not Resolved]
